FAERS Safety Report 21475601 (Version 2)
Quarter: 2022Q4

REPORT INFORMATION
  Report Type: Spontaneous
  Country: US (occurrence: US)
  Receive Date: 20221019
  Receipt Date: 20221125
  Transmission Date: 20230112
  Serious: No
  Sender: FDA-Public Use
  Company Number: US-AIMMUNE THERAPEUTICS, INC.-2022AIMT02624

PATIENT

DRUGS (4)
  1. PALFORZIA [Suspect]
     Active Substance: PEANUT
     Indication: Food allergy
     Dosage: IDE (0.5-6MG), ONCE
     Route: 048
     Dates: start: 20220921, end: 20220921
  2. PALFORZIA [Suspect]
     Active Substance: PEANUT
     Dosage: 6 MG, ONCE, LAST DOSE PRIOR EVENT
     Route: 048
     Dates: start: 20221004, end: 20221004
  3. PALFORZIA [Suspect]
     Active Substance: PEANUT
     Dosage: 3 MG, 1X/DAY
     Route: 048
     Dates: start: 202210, end: 20221027
  4. PALFORZIA [Suspect]
     Active Substance: PEANUT
     Dosage: 3 MG, 1X/DAY, LAST DOSE PRIOR TO EVENT
     Route: 048

REACTIONS (2)
  - Drug dose titration not performed [Unknown]
  - Abdominal pain upper [Recovered/Resolved]

NARRATIVE: CASE EVENT DATE: 20221004
